FAERS Safety Report 7343140-X (Version None)
Quarter: 2011Q1

REPORT INFORMATION
  Report Type: 
  Country: None (occurrence: None)
  Receive Date: 20110310
  Receipt Date: 20110307
  Transmission Date: 20110831
  Serious: Yes (Death, Hospitalization, Other)
  Sender: FDA-Public Use
  Company Number: ES-AMGEN INC.-QUU442006

PATIENT
  Age: 72 Year
  Sex: Male
  Weight: 75 kg

DRUGS (5)
  1. LANTUS [Concomitant]
     Dosage: 12 UNIT, QD
  2. NPLATE [Suspect]
     Indication: IDIOPATHIC THROMBOCYTOPENIC PURPURA
     Dosage: 3 PG, QWK
     Route: 058
     Dates: start: 20090915, end: 20100706
  3. NPLATE [Suspect]
  4. NPLATE [Suspect]
  5. NPLATE [Suspect]
     Dosage: UNK
     Dates: start: 20090915, end: 20091202

REACTIONS (7)
  - METASTASES TO CENTRAL NERVOUS SYSTEM [None]
  - CHILLS [None]
  - BONE PAIN [None]
  - DISABILITY [None]
  - MYALGIA [None]
  - LUNG CANCER METASTATIC [None]
  - HEADACHE [None]
